FAERS Safety Report 5107348-6 (Version None)
Quarter: 2006Q3

REPORT INFORMATION
  Report Type: 
  Country: None (occurrence: None)
  Receive Date: 20060914
  Receipt Date: 20060907
  Transmission Date: 20061208
  Serious: Yes (Other)
  Sender: FDA-Public Use
  Company Number: 2006SP000864

PATIENT
  Age: 14 Year
  Sex: Female

DRUGS (1)
  1. ALBUTEROL SULATE [Suspect]
     Indication: COUGH
     Dosage: SEE IMAGE
     Route: 055
     Dates: start: 20060903, end: 20060903

REACTIONS (4)
  - COUGH [None]
  - DIZZINESS [None]
  - ELECTROCARDIOGRAM QT PROLONGED [None]
  - HEART RATE INCREASED [None]
